FAERS Safety Report 6553054-0 (Version None)
Quarter: 2010Q1

REPORT INFORMATION
  Report Type: 
  Country: None (occurrence: None)
  Receive Date: 20100122
  Receipt Date: 20100108
  Transmission Date: 20100710
  Serious: Yes (Hospitalization)
  Sender: FDA-Public Use
  Company Number: 004163

PATIENT
  Sex: Male
  Weight: 16 kg

DRUGS (6)
  1. KEPPRA [Suspect]
     Indication: CONVULSION
     Dosage: (625 MG BID)
  2. PHENOBARBITAL TAB [Concomitant]
  3. RISPERDAL [Concomitant]
  4. RUFINAMIDE [Concomitant]
  5. PULMICORT [Concomitant]
  6. DUONEB [Concomitant]

REACTIONS (1)
  - CONVULSION [None]
